FAERS Safety Report 4301395-X (Version None)
Quarter: 2004Q1

REPORT INFORMATION
  Report Type: 
  Country: None (occurrence: None)
  Receive Date: 20040219
  Receipt Date: 20040203
  Transmission Date: 20041129
  Serious: No
  Sender: FDA-Public Use
  Company Number: 12502589

PATIENT
  Age: 64 Year
  Sex: Female

DRUGS (2)
  1. ERBITUX (CETUXIMAB) - IMCLONE [Suspect]
     Indication: RECTAL CANCER
     Dosage: IVD
     Route: 041
  2. CAMPTO (IRINOTECAN HCL) [Suspect]
     Indication: RECTAL CANCER
     Dosage: IV
     Route: 042

REACTIONS (11)
  - ASTHENIA [None]
  - BONE MARROW DEPRESSION [None]
  - HERPES SIMPLEX [None]
  - INFECTION [None]
  - LEUKOPENIA [None]
  - METASTASES TO LYMPH NODES [None]
  - PYREXIA [None]
  - STOMATITIS [None]
  - THROMBOCYTOPENIA [None]
  - URINARY TRACT INFECTION [None]
  - URINARY TRACT OBSTRUCTION [None]
